FAERS Safety Report 5249889-7 (Version None)
Quarter: 2007Q1

REPORT INFORMATION
  Report Type: 
  Country: None (occurrence: None)
  Receive Date: 20070228
  Receipt Date: 20070213
  Transmission Date: 20070707
  Serious: Yes (Death, Hospitalization)
  Sender: FDA-Public Use
  Company Number: ITWYE648113FEB07

PATIENT
  Sex: Male

DRUGS (5)
  1. ENBREL [Suspect]
     Indication: RHEUMATOID ARTHRITIS
     Dosage: 25 MG EVERY 1 CYC
     Route: 058
     Dates: start: 20041214, end: 20070118
  2. TIROSINT [Concomitant]
     Dosage: 50 MG
     Route: 048
     Dates: start: 20050101, end: 20070118
  3. MEDROL [Concomitant]
     Dosage: 4 MG
     Route: 048
     Dates: start: 20041214, end: 20070118
  4. PLAQUENIL [Concomitant]
     Dosage: 200 MG
     Route: 048
     Dates: start: 20041214, end: 20070118
  5. MODURETIC 5-50 [Concomitant]
     Dosage: NOT PROVIDED
     Route: 048
     Dates: start: 20041214, end: 20070118

REACTIONS (2)
  - DEATH [None]
  - INTESTINAL INFARCTION [None]
